FAERS Safety Report 20101820 (Version 1)
Quarter: 2021Q4

REPORT INFORMATION
  Report Type: Spontaneous
  Country: KR (occurrence: KR)
  Receive Date: 20211123
  Receipt Date: 20211123
  Transmission Date: 20220303
  Serious: Yes (Hospitalization, Other)
  Sender: FDA-Public Use
  Company Number: KR-MLMSERVICE-20211108-3211616-1

PATIENT
  Age: 58 Year
  Sex: Male
  Weight: 68 kg

DRUGS (4)
  1. METHYLPREDNISOLONE ACETATE [Suspect]
     Active Substance: METHYLPREDNISOLONE ACETATE
     Indication: Dermatitis
     Dosage: 6-12 MG DAILY FOR 9 YEARS
  2. METHYLPREDNISOLONE ACETATE [Suspect]
     Active Substance: METHYLPREDNISOLONE ACETATE
     Dosage: 3 MG, 1X/DAY
  3. METHYLPREDNISOLONE ACETATE [Suspect]
     Active Substance: METHYLPREDNISOLONE ACETATE
     Dosage: UNK; 6 MONTHS POSTOPERATIVELY
  4. CYCLOSPORINE [Concomitant]
     Active Substance: CYCLOSPORINE
     Indication: Eczema
     Dosage: UNK

REACTIONS (1)
  - Femur fracture [Recovered/Resolved]
